FAERS Safety Report 8085989-4 (Version None)
Quarter: 2012Q1

REPORT INFORMATION
  Report Type: 
  Country: None (occurrence: None)
  Receive Date: 20120128
  Receipt Date: 20110412
  Transmission Date: 20120608
  Serious: No
  Sender: FDA-Public Use
  Company Number: US-ABBOTT-11P-163-0718904-00

PATIENT
  Sex: Female
  Weight: 72.64 kg

DRUGS (10)
  1. ALLOPURINOL [Concomitant]
     Indication: GOUT
  2. VITAMIN D [Concomitant]
     Indication: VITAMIN SUPPLEMENTATION
  3. METOPROLOL TARTRATE [Concomitant]
     Indication: HYPERTENSION
  4. OMEPRAZOLE [Concomitant]
     Indication: GASTRIC DISORDER
  5. OMEPRAZOLE [Concomitant]
     Indication: PROPHYLAXIS
  6. FISH OIL [Concomitant]
     Indication: SUPPLEMENTATION THERAPY
  7. HUMIRA [Suspect]
     Indication: PSORIASIS
     Dates: start: 20100101, end: 20100101
  8. NEURONTIN [Concomitant]
     Indication: MUSCLE SPASMS
  9. PRAVASTATIN [Concomitant]
     Indication: BLOOD CHOLESTEROL INCREASED
  10. COUMADIN [Concomitant]
     Indication: TRANSIENT ISCHAEMIC ATTACK
     Dates: start: 20090101

REACTIONS (2)
  - DRY EYE [None]
  - VISION BLURRED [None]
